FAERS Safety Report 9503355 (Version 3)
Quarter: 2013Q4

REPORT INFORMATION
  Report Type: Spontaneous
  Country: US (occurrence: None)
  Receive Date: 20130107
  Receipt Date: 20131226
  Transmission Date: 20140711
  Serious: Yes (Other)
  Sender: FDA-Public Use
  Company Number: PHEH2012US017612

PATIENT
  Age: 56 Year
  Sex: Female

DRUGS (15)
  1. GILENYA [Suspect]
     Indication: MULTIPLE SCLEROSIS
     Route: 048
     Dates: start: 20120418
  2. ATENOLOL (ATENOLOL) [Concomitant]
  3. PRIMIDONE [Concomitant]
  4. GABAPENTIN (GABAPENTIN) [Concomitant]
  5. AGGRENOX [Concomitant]
  6. FAMPRIDINE [Concomitant]
  7. AMANTADINE [Concomitant]
  8. AMPYRA [Concomitant]
  9. IBUPROFEN [Concomitant]
  10. ZOLOFT (SERTRALINE HYDROCHLORIDE) [Concomitant]
  11. TOVIAZ (FESOTERODINE FUMARATE) [Concomitant]
  12. ALPRAZOLAM (ALPRAZOLAM) [Concomitant]
  13. PERCOCET [Concomitant]
  14. QUINAPRIL [Concomitant]
  15. LIPITOR (ATORVASTATIN CALCIUM) [Concomitant]

REACTIONS (2)
  - Visual impairment [None]
  - Dyspnoea [None]
